FAERS Safety Report 13463878 (Version 1)
Quarter: 2017Q2

REPORT INFORMATION
  Report Type: Spontaneous
  Country: US (occurrence: US)
  Receive Date: 20170420
  Receipt Date: 20170420
  Transmission Date: 20170830
  Serious: Yes (Other)
  Sender: FDA-Public Use
  Company Number: US-ROCHE-680419

PATIENT
  Age: 14 Year
  Sex: Male
  Weight: 71.7 kg

DRUGS (2)
  1. KEFLEX [Concomitant]
     Active Substance: CEPHALEXIN
     Route: 065
  2. ACCUTANE [Suspect]
     Active Substance: ISOTRETINOIN
     Indication: ACNE
     Dosage: DOSE: 40 MG ALTERNATING WITH 80 MG DAILY
     Route: 048
     Dates: start: 20010725, end: 20020212

REACTIONS (7)
  - Crohn^s disease [Unknown]
  - Paronychia [Unknown]
  - Inflammatory bowel disease [Unknown]
  - Colitis ulcerative [Unknown]
  - Lymphadenopathy [Unknown]
  - Ingrowing nail [Unknown]
  - Depression [Unknown]

NARRATIVE: CASE EVENT DATE: 20010811
